FAERS Safety Report 21193828 (Version 1)
Quarter: 2022Q3

REPORT INFORMATION
  Report Type: Report from Study
  Country: ES (occurrence: ES)
  Receive Date: 20220810
  Receipt Date: 20220810
  Transmission Date: 20221027
  Serious: Yes (Life-Threatening, Hospitalization)
  Sender: FDA-Public Use
  Company Number: None

PATIENT
  Age: 81 Year
  Sex: Female

DRUGS (4)
  1. MIRTAZAPINE [Suspect]
     Active Substance: MIRTAZAPINE
     Indication: Intentional overdose
     Dosage: DURATION :1 DAY, MIRTAZAPINE (2704A)
     Route: 065
     Dates: start: 20220612, end: 20220612
  2. DIAZEPAM [Suspect]
     Active Substance: DIAZEPAM
     Indication: Intentional overdose
     Dosage: DIAZEPAM (730A), DURATION :1 DAY
     Route: 065
     Dates: start: 20220612, end: 20220612
  3. PAROXETINE HYDROCHLORIDE [Suspect]
     Active Substance: PAROXETINE HYDROCHLORIDE
     Indication: Depression
     Dosage: STRENGTH  : 20 MG, 28 TABLETS,  DURATION :16 YEARS
     Route: 065
     Dates: start: 200601, end: 20220612
  4. AMITRIPTYLINE HYDROCHLORIDE [Suspect]
     Active Substance: AMITRIPTYLINE HYDROCHLORIDE
     Indication: Intentional overdose
     Dosage: AMITRIPTYLINE (395A), DURATION :1 DAY
     Route: 065
     Dates: start: 20220612, end: 20220612

REACTIONS (3)
  - Intentional overdose [Recovered/Resolved]
  - Ventricular tachycardia [Recovered/Resolved]
  - Depressed level of consciousness [Recovered/Resolved]

NARRATIVE: CASE EVENT DATE: 20220612
